FAERS Safety Report 9251078 (Version 1)
Quarter: 2013Q2

REPORT INFORMATION
  Report Type: Not Available
  Country: CN (occurrence: CN)
  Receive Date: 20130424
  Receipt Date: 20130424
  Transmission Date: 20140414
  Serious: Yes (Other)
  Sender: FDA-Public Use
  Company Number: CN-ASTELLAS-2013JP005023

PATIENT
  Age: 20 Year
  Sex: Male
  Weight: 57.5 kg

DRUGS (5)
  1. TACROLIMUS [Suspect]
     Indication: LUPUS NEPHRITIS
     Dosage: 2 UG, BID
     Route: 048
     Dates: start: 20110712, end: 20120126
  2. HORMONES [Concomitant]
     Route: 065
  3. IMMUNOSUPPRESSANTS [Concomitant]
     Dosage: UNK
     Route: 065
  4. METHYLPREDNISOLONE [Concomitant]
     Dosage: UNK
     Route: 065
     Dates: start: 201107
  5. MYCOPHENOLATE MOFETIL [Concomitant]
     Dosage: UNK
     Route: 048
     Dates: start: 201107

REACTIONS (1)
  - Immune system disorder [Recovered/Resolved]
